FAERS Safety Report 17057184 (Version 5)
Quarter: 2020Q1

REPORT INFORMATION
  Report Type: Spontaneous
  Country: IT (occurrence: IT)
  Receive Date: 20191121
  Receipt Date: 20200118
  Transmission Date: 20200409
  Serious: Yes (Life-Threatening, Hospitalization, Disabling, Other)
  Sender: FDA-Public Use
  Company Number: IT-ACCORD-161572

PATIENT
  Age: 59 Year
  Sex: Male

DRUGS (5)
  1. CICLOSPORIN [Suspect]
     Active Substance: CYCLOSPORINE
     Indication: PROPHYLAXIS AGAINST GRAFT VERSUS HOST DISEASE
     Dosage: 3 MG/KG, FROM DAY -1
     Route: 042
     Dates: start: 201803, end: 201804
  2. MICAFUNGIN/MICAFUNGIN SODIUM [Concomitant]
     Active Substance: MICAFUNGIN SODIUM
     Indication: ANTIFUNGAL PROPHYLAXIS
     Dates: start: 201803
  3. ANTITHYMOCYTE IMMUNOGLOBULIN ( [Suspect]
     Active Substance: THYMOCYTE IMMUNE GLOBULIN NOS
     Indication: PROPHYLAXIS AGAINST GRAFT VERSUS HOST DISEASE
     Dosage: 2.5 MG/KG DAYS -3, -2, -1
     Route: 042
     Dates: start: 201803
  4. DEFERASIROX. [Concomitant]
     Active Substance: DEFERASIROX
     Indication: PROPHYLAXIS
     Dosage: TWO MONTHS BEFORE HSCT
     Dates: start: 201708
  5. METHOTREXATE. [Suspect]
     Active Substance: METHOTREXATE
     Indication: PROPHYLAXIS AGAINST GRAFT VERSUS HOST DISEASE
     Dosage: 30 MG DAY +1 THEN 20 MG DAYS +3 AND +6
     Dates: start: 201803

REACTIONS (2)
  - Weight decreased [Recovered/Resolved]
  - Rhinocerebral mucormycosis [Recovered/Resolved]

NARRATIVE: CASE EVENT DATE: 201803
